FAERS Safety Report 4899485-6 (Version None)
Quarter: 2006Q1

REPORT INFORMATION
  Report Type: 
  Country: None (occurrence: None)
  Receive Date: 20060131
  Receipt Date: 20060118
  Transmission Date: 20060701
  Serious: Yes (Hospitalization)
  Sender: FDA-Public Use
  Company Number: S06-FRA-00094-01

PATIENT
  Age: 85 Year
  Sex: Female

DRUGS (4)
  1. CITALOPRAM HYDROBROMIDE [Suspect]
     Dosage: 20 MG QD PO
     Route: 048
     Dates: start: 20050615, end: 20051230
  2. EFFEXOR [Suspect]
     Dosage: 1 QD PO
     Route: 048
     Dates: start: 20051215, end: 20051230
  3. INEXIUM (ESOMEPRAZOLE MAGNESIUM) (ESOMEPRAZOLE) [Concomitant]
  4. ATACAND [Concomitant]

REACTIONS (5)
  - BLOOD OSMOLARITY DECREASED [None]
  - BUNDLE BRANCH BLOCK LEFT [None]
  - CEREBRAL ATROPHY [None]
  - CONVULSION [None]
  - HYPONATRAEMIA [None]
